FAERS Safety Report 18943123 (Version 1)
Quarter: 2021Q1

REPORT INFORMATION
  Report Type: Spontaneous
  Country: US (occurrence: US)
  Receive Date: 20210226
  Receipt Date: 20210226
  Transmission Date: 20210420
  Serious: No
  Sender: FDA-Public Use
  Company Number: US-CIPLA LTD.-2021US00781

PATIENT

DRUGS (2)
  1. DICLOFENAC [Concomitant]
     Active Substance: DICLOFENAC
     Indication: CHEST DISCOMFORT
     Dosage: 75 MILLIGRAM, BID, ONE IN THE MORNING AND ONE IN THE EVENING
     Route: 065
     Dates: start: 20210128
  2. DICLOFENAC [Suspect]
     Active Substance: DICLOFENAC
     Indication: CHEST DISCOMFORT
     Dosage: UNK
     Route: 061

REACTIONS (1)
  - Off label use [Unknown]

NARRATIVE: CASE EVENT DATE: 20210127
